FAERS Safety Report 8888918 (Version 4)
Quarter: 2013Q2

REPORT INFORMATION
  Report Type: Spontaneous
  Country: DE (occurrence: DE)
  Receive Date: 20121106
  Receipt Date: 20130411
  Transmission Date: 20140414
  Serious: Yes (Other)
  Sender: FDA-Public Use
  Company Number: PHHY2011DE105892

PATIENT
  Sex: Female

DRUGS (1)
  1. EXTAVIA [Suspect]
     Indication: MULTIPLE SCLEROSIS
     Dosage: 1 ML, QOD
     Route: 058
     Dates: start: 20110216

REACTIONS (3)
  - Blindness transient [Recovered/Resolved]
  - Mental disorder [Not Recovered/Not Resolved]
  - Fatigue [Not Recovered/Not Resolved]
